FAERS Safety Report 7674939-8 (Version None)
Quarter: 2011Q3

REPORT INFORMATION
  Report Type: 
  Country: None (occurrence: None)
  Receive Date: 20110810
  Receipt Date: 20110729
  Transmission Date: 20111222
  Serious: Yes (Hospitalization)
  Sender: FDA-Public Use
  Company Number: PHHY2011FR70717

PATIENT
  Sex: Female

DRUGS (7)
  1. IMOVANE [Suspect]
     Dosage: UNK UKN, UNK
     Route: 048
  2. LORAZEPAM [Suspect]
     Dosage: UNK UKN, UNK
     Route: 048
     Dates: end: 20101209
  3. ANAFRANIL [Suspect]
     Dosage: UNK UKN, UNK
     Dates: end: 20101209
  4. ALPRAZOLAM [Concomitant]
     Dosage: 0.25 MG, UNK
  5. URBANYL [Concomitant]
     Dosage: UNK UKN, UNK
  6. SERTRALINE HYDROCHLORIDE [Suspect]
     Dosage: UNK UKN, UNK
     Dates: end: 20101209
  7. ESCITALOPRAM OXALATE [Concomitant]
     Dosage: 1 DF PER DAY, UNK

REACTIONS (7)
  - GRAND MAL CONVULSION [None]
  - ELECTROENCEPHALOGRAM ABNORMAL [None]
  - CONFUSIONAL STATE [None]
  - DISORIENTATION [None]
  - DRUG WITHDRAWAL SYNDROME [None]
  - EPILEPSY [None]
  - TONGUE BITING [None]
